FAERS Safety Report 18823182 (Version 3)
Quarter: 2021Q1

REPORT INFORMATION
  Report Type: Report from Study
  Country: CO (occurrence: CO)
  Receive Date: 20210202
  Receipt Date: 20210212
  Transmission Date: 20210419
  Serious: Yes (Hospitalization)
  Sender: FDA-Public Use
  Company Number: NVSC2020CO329979

PATIENT
  Age: 56 Year
  Sex: Female
  Weight: 66 kg

DRUGS (10)
  1. EXEMESTANE. [Concomitant]
     Active Substance: EXEMESTANE
     Indication: BREAST CANCER
     Dosage: 25 MG, QD
     Route: 065
     Dates: start: 20180725
  2. HYDROCHLOROTHIAZIDE. [Concomitant]
     Active Substance: HYDROCHLOROTHIAZIDE
     Dosage: 25 MG (DAILY)
     Route: 048
     Dates: start: 2019
  3. AFINITOR [Suspect]
     Active Substance: EVEROLIMUS
     Indication: BREAST CANCER
     Dosage: 10 MG, QD
     Route: 048
     Dates: start: 20180725
  4. HYDROCHLOROTHIAZIDE. [Concomitant]
     Active Substance: HYDROCHLOROTHIAZIDE
     Indication: HYPERTENSION
     Dosage: 25 MG, QD (6 MONTHS AGO)
     Route: 065
  5. LOSARTAN. [Suspect]
     Active Substance: LOSARTAN
     Dosage: 50 MG (DAILY)
     Route: 048
     Dates: start: 2019
  6. EXEMESTANE. [Concomitant]
     Active Substance: EXEMESTANE
     Dosage: 25 MG (DAILY)
     Route: 048
     Dates: start: 201808
  7. PHENOBARBITAL. [Concomitant]
     Active Substance: PHENOBARBITAL
     Indication: SEIZURE
     Dosage: 100 MG, QD
     Route: 048
  8. AFINITOR [Suspect]
     Active Substance: EVEROLIMUS
     Dosage: 10 MG, QD
     Route: 048
     Dates: start: 201808
  9. LOSARTAN. [Suspect]
     Active Substance: LOSARTAN
     Indication: HYPERTENSION
     Dosage: 50 MG, Q12H (6 MONTHS AGO)
     Route: 065
  10. PHENOBARBITAL. [Concomitant]
     Active Substance: PHENOBARBITAL
     Indication: EPILEPSY

REACTIONS (11)
  - Pleural effusion [Unknown]
  - Pulmonary pain [Unknown]
  - Chest pain [Unknown]
  - Off label use [Unknown]
  - Tachycardia [Unknown]
  - Product supply issue [Unknown]
  - Product dose omission issue [Unknown]
  - Dyspnoea [Unknown]
  - Back pain [Unknown]
  - Breast pain [Unknown]
  - Pain [Unknown]

NARRATIVE: CASE EVENT DATE: 20201116
